FAERS Safety Report 6523494-4 (Version None)
Quarter: 2009Q4

REPORT INFORMATION
  Report Type: 
  Country: None (occurrence: None)
  Receive Date: 20091231
  Receipt Date: 20091221
  Transmission Date: 20100525
  Serious: Yes (Other)
  Sender: FDA-Public Use
  Company Number: PHHY2009ZA19309

PATIENT
  Sex: Female

DRUGS (1)
  1. TRILEPTAL [Suspect]
     Indication: EPILEPSY
     Dosage: UNK
     Dates: start: 19990101

REACTIONS (3)
  - MOUTH ULCERATION [None]
  - RASH [None]
  - SYSTEMIC LUPUS ERYTHEMATOSUS [None]
